FAERS Safety Report 7429086-7 (Version None)
Quarter: 2011Q2

REPORT INFORMATION
  Report Type: 
  Country: None (occurrence: None)
  Receive Date: 20110421
  Receipt Date: 20110413
  Transmission Date: 20111010
  Serious: Yes (Other)
  Sender: FDA-Public Use
  Company Number: US-BAXTER-2011BH010875

PATIENT

DRUGS (1)
  1. SEVOFLURANE [Suspect]
     Indication: SURGERY
     Route: 065
     Dates: start: 20110101, end: 20110101

REACTIONS (2)
  - DRUG INEFFECTIVE [None]
  - HYPERTENSION [None]
